FAERS Safety Report 7982422-5 (Version None)
Quarter: 2011Q4

REPORT INFORMATION
  Report Type: 
  Country: None (occurrence: None)
  Receive Date: 20111215
  Receipt Date: 20111208
  Transmission Date: 20120403
  Serious: Yes (Death, Hospitalization, Other)
  Sender: FDA-Public Use
  Company Number: PHHY2009CH17201

PATIENT
  Age: 9 Year
  Sex: Female

DRUGS (9)
  1. METHYLPREDNISOLONE [Concomitant]
  2. FLUDARABINE PHOSPHATE [Concomitant]
     Indication: BONE MARROW CONDITIONING REGIMEN
     Dosage: 30 MG/DAY
  3. SIROLIMUS [Concomitant]
  4. CYCLOSPORINE [Suspect]
     Indication: STEM CELL TRANSPLANT
     Dosage: 4 MG/KG/DAY
  5. CYCLOSPORINE [Suspect]
     Indication: PROPHYLAXIS AGAINST GRAFT VERSUS HOST DISEASE
  6. TACROLIMUS [Concomitant]
  7. CYCLOPHOSPHAMIDE [Concomitant]
     Indication: BONE MARROW CONDITIONING REGIMEN
     Dosage: 50 MG/KG/DAY FOR 4 DAYS
  8. ANTI-THYMOCYTE GLOBULIN NOS [Concomitant]
     Indication: BONE MARROW CONDITIONING REGIMEN
     Dosage: 5 MG/KG/DAY
  9. STEROIDS NOS [Concomitant]

REACTIONS (19)
  - COOMBS NEGATIVE HAEMOLYTIC ANAEMIA [None]
  - PULMONARY ARTERY THROMBOSIS [None]
  - RESPIRATORY FAILURE [None]
  - ANAEMIA [None]
  - THROMBOTIC MICROANGIOPATHY [None]
  - THROMBOCYTOPENIA [None]
  - MULTI-ORGAN FAILURE [None]
  - RED BLOOD CELL SCHISTOCYTES PRESENT [None]
  - PETECHIAE [None]
  - PERICARDIAL EFFUSION [None]
  - BLOOD LACTATE DEHYDROGENASE INCREASED [None]
  - INFECTIOUS PLEURAL EFFUSION [None]
  - RENAL FAILURE ACUTE [None]
  - POSTERIOR REVERSIBLE ENCEPHALOPATHY SYNDROME [None]
  - KIDNEY FIBROSIS [None]
  - HUMAN HERPESVIRUS 6 INFECTION [None]
  - CYTOMEGALOVIRUS INFECTION [None]
  - GRAFT VERSUS HOST DISEASE IN INTESTINE [None]
  - PULMONARY ARTERIAL HYPERTENSION [None]
